FAERS Safety Report 6035927-0 (Version None)
Quarter: 2009Q1

REPORT INFORMATION
  Report Type: 
  Country: None (occurrence: None)
  Receive Date: 20090113
  Receipt Date: 20090108
  Transmission Date: 20090719
  Serious: No
  Sender: FDA-Public Use
  Company Number: B0547166A

PATIENT
  Age: 78 Year
  Sex: Female

DRUGS (5)
  1. VALTREX [Suspect]
     Indication: HERPES ZOSTER
     Dosage: 1000MG THREE TIMES PER DAY
     Route: 048
     Dates: start: 20071027, end: 20071031
  2. INTEBAN [Concomitant]
     Indication: PAIN
     Dosage: 50MG PER DAY
     Route: 048
     Dates: start: 20071029, end: 20071101
  3. MUCOSTA [Concomitant]
     Indication: DRUG USE FOR UNKNOWN INDICATION
     Dosage: 300MG PER DAY
     Route: 048
     Dates: start: 20071027, end: 20071126
  4. PONSTEL [Concomitant]
     Indication: PAIN
     Dosage: 750MG PER DAY
     Route: 048
     Dates: start: 20071027, end: 20071028
  5. PRAVASTATINE NATRIUM [Concomitant]
     Dosage: 5MG PER DAY
     Route: 048
     Dates: start: 20060209

REACTIONS (1)
  - FEELING ABNORMAL [None]
